FAERS Safety Report 7572137-X (Version None)
Quarter: 2011Q2

REPORT INFORMATION
  Report Type: 
  Country: None (occurrence: None)
  Receive Date: 20110624
  Receipt Date: 20110617
  Transmission Date: 20111010
  Serious: Yes (Other)
  Sender: FDA-Public Use
  Company Number: US-MYLANLABS-2011S1012617

PATIENT
  Age: 42 Year
  Sex: Female

DRUGS (3)
  1. PLAN B [Suspect]
     Indication: CONTRACEPTION
     Dates: start: 20110429, end: 20110429
  2. CLARAVIS [Suspect]
     Route: 048
     Dates: start: 20110105
  3. AMNESTEEM [Suspect]
     Route: 048
     Dates: end: 20110403

REACTIONS (2)
  - DRUG EXPOSURE BEFORE PREGNANCY [None]
  - VAGINAL HAEMORRHAGE [None]
